FAERS Safety Report 7152548-7 (Version None)
Quarter: 2010Q4

REPORT INFORMATION
  Report Type: 
  Country: None (occurrence: None)
  Receive Date: 20101209
  Receipt Date: 20101209
  Transmission Date: 20110411
  Serious: Yes (Other)
  Sender: FDA-Public Use
  Company Number: None

PATIENT
  Sex: Male
  Weight: 68.0396 kg

DRUGS (1)
  1. CHANTIX [Suspect]
     Indication: SMOKING CESSATION THERAPY
     Dosage: 1 PILL 2 PER DAY
     Dates: start: 20101204, end: 20101207

REACTIONS (9)
  - ABNORMAL DREAMS [None]
  - AGITATION [None]
  - ANXIETY [None]
  - DEPRESSION [None]
  - FEELING OF DESPAIR [None]
  - JUDGEMENT IMPAIRED [None]
  - MANIA [None]
  - PANIC REACTION [None]
  - PARANOIA [None]
